FAERS Safety Report 10760581 (Version 1)
Quarter: 2015Q1

REPORT INFORMATION
  Report Type: Spontaneous
  Country: BR (occurrence: BR)
  Receive Date: 20150204
  Receipt Date: 20150204
  Transmission Date: 20150721
  Serious: Yes (Death, Hospitalization, Other)
  Sender: FDA-Public Use
  Company Number: BR-009507513-1501BRA011356

PATIENT
  Age: 1 Day

DRUGS (1)
  1. MERCILON [Suspect]
     Active Substance: DESOGESTREL\ETHINYL ESTRADIOL
     Dosage: 1 DF, QD
     Route: 064
     Dates: start: 1995, end: 2002

REACTIONS (4)
  - Lung infection [Fatal]
  - Cardiac arrest [Fatal]
  - Meconium in amniotic fluid [Fatal]
  - Neonatal aspiration [Fatal]

NARRATIVE: CASE EVENT DATE: 2002
